FAERS Safety Report 9967674 (Version 2)
Quarter: 2014Q1

REPORT INFORMATION
  Report Type: Spontaneous
  Country: US (occurrence: US)
  Receive Date: 20140306
  Receipt Date: 20140306
  Transmission Date: 20141002
  Serious: Yes (Disabling)
  Sender: FDA-Public Use
  Company Number: US-GE HEALTHCARE MEDICAL DIAGNOSTICS-OSCN-PR-0704S-0155

PATIENT
  Age: 14 Year
  Sex: Male

DRUGS (25)
  1. OMNISCAN [Suspect]
     Indication: EWING^S SARCOMA
     Route: 065
     Dates: start: 20010824, end: 20010824
  2. OMNISCAN [Suspect]
     Indication: CONVULSION
     Route: 065
     Dates: start: 20020807, end: 20020807
  3. OMNISCAN [Suspect]
     Indication: LYMPHOMA
     Route: 065
     Dates: start: 20030323, end: 20030323
  4. OMNISCAN [Suspect]
     Route: 065
     Dates: start: 20030324, end: 20030324
  5. OMNISCAN [Suspect]
     Route: 065
     Dates: start: 20030730, end: 20030730
  6. OMNISCAN [Suspect]
     Route: 065
     Dates: start: 20030825, end: 20030825
  7. OMNISCAN [Suspect]
     Route: 065
     Dates: start: 20030918, end: 20030918
  8. OMNISCAN [Suspect]
     Route: 065
     Dates: start: 20040219, end: 20040219
  9. OMNISCAN [Suspect]
     Route: 065
     Dates: start: 20040802, end: 20040802
  10. OMNISCAN [Suspect]
     Route: 065
     Dates: start: 20041020, end: 20041020
  11. GADOLINIUM (UNSPECIFIED) [Suspect]
     Indication: LYMPHOMA
     Route: 065
     Dates: start: 19970806, end: 19970806
  12. GADOLINIUM (UNSPECIFIED) [Suspect]
     Indication: ARTHRALGIA
     Route: 065
     Dates: start: 20010525, end: 20010525
  13. GADOLINIUM (UNSPECIFIED) [Suspect]
     Indication: RENAL FAILURE CHRONIC
     Route: 065
     Dates: start: 20020215, end: 20020215
  14. GADOLINIUM (UNSPECIFIED) [Suspect]
     Indication: T-CELL LYMPHOMA
  15. GADOLINIUM (UNSPECIFIED) [Suspect]
     Indication: EWING^S SARCOMA
  16. MAGNEVIST [Suspect]
     Indication: EWING^S SARCOMA
     Route: 065
     Dates: start: 20011019, end: 20011019
  17. MAGNEVIST [Suspect]
     Indication: MEDULLOBLASTOMA
     Route: 065
     Dates: start: 20011107, end: 20011107
  18. MAGNEVIST [Suspect]
     Indication: CONVULSION
     Route: 065
     Dates: start: 20020307, end: 20020307
  19. MAGNEVIST [Suspect]
     Route: 065
     Dates: start: 20021017, end: 20021017
  20. MAGNEVIST [Suspect]
     Route: 065
     Dates: start: 20030109, end: 20030109
  21. MAGNEVIST [Suspect]
     Route: 065
     Dates: start: 20040522, end: 20040522
  22. MAGNEVIST [Suspect]
     Route: 065
     Dates: start: 20040611, end: 20040611
  23. OPTIMARK [Suspect]
     Indication: EWING^S SARCOMA
     Route: 065
     Dates: start: 20020710, end: 20020710
  24. OPTIMARK [Suspect]
     Indication: HEADACHE
     Route: 065
     Dates: start: 20040514, end: 20040514
  25. EPOGEN [Concomitant]

REACTIONS (1)
  - Nephrogenic systemic fibrosis [Not Recovered/Not Resolved]
